FAERS Safety Report 16127566 (Version 2)
Quarter: 2019Q3

REPORT INFORMATION
  Report Type: Spontaneous
  Country: US (occurrence: US)
  Receive Date: 20190328
  Receipt Date: 20190709
  Transmission Date: 20191004
  Serious: No
  Sender: FDA-Public Use
  Company Number: US-PFIZER INC-2019131844

PATIENT
  Age: 73 Year
  Sex: Female
  Weight: 77.98 kg

DRUGS (1)
  1. ALPRAZOLAM. [Suspect]
     Active Substance: ALPRAZOLAM
     Indication: ANXIETY
     Dosage: 0.25 MG, AS NEEDED (1/2 0.25 MG TABLET BY MOUTH THREE TIMES A DAY AS NEEDED)
     Route: 048

REACTIONS (1)
  - Somnolence [Unknown]
